FAERS Safety Report 5734771-9 (Version None)
Quarter: 2008Q2

REPORT INFORMATION
  Report Type: 
  Country: None (occurrence: None)
  Receive Date: 20080508
  Receipt Date: 20080501
  Transmission Date: 20081010
  Serious: Yes (Other)
  Sender: FDA-Public Use
  Company Number: 2008S1004334

PATIENT
  Age: 62 Year
  Sex: Female

DRUGS (1)
  1. FLEET PREP KIT 1 [Suspect]
     Indication: COLONOSCOPY
     Dosage: 45 ML;X1;PO
     Route: 048
     Dates: start: 20080427, end: 20080427

REACTIONS (3)
  - DYSPNOEA [None]
  - ERUCTATION [None]
  - VOMITING [None]
